FAERS Safety Report 6284505-7 (Version None)
Quarter: 2009Q3

REPORT INFORMATION
  Report Type: 
  Country: None (occurrence: None)
  Receive Date: 20090727
  Receipt Date: 20090612
  Transmission Date: 20100115
  Serious: No
  Sender: FDA-Public Use
  Company Number: US-ALEXION-A200900478

PATIENT
  Sex: Female

DRUGS (7)
  1. SOLIRIS [Suspect]
     Indication: PAROXYSMAL NOCTURNAL HAEMOGLOBINURIA
     Dosage: 600 MG, QW
     Route: 042
     Dates: start: 20070605, end: 20070626
  2. SOLIRIS [Suspect]
     Dosage: 900 MG, Q2W
     Route: 042
     Dates: start: 20070703
  3. SYNTHROID [Concomitant]
     Dosage: UNK
     Route: 048
  4. OSCAL                              /00108001/ [Concomitant]
     Dosage: UNK
     Route: 048
  5. TOPAMAX [Concomitant]
     Dosage: UNK
     Route: 048
  6. COUMADIN [Concomitant]
     Dosage: UNK
     Route: 048
  7. PREMARIN [Concomitant]
     Dosage: UNK
     Route: 048

REACTIONS (1)
  - MUSCLE STRAIN [None]
